FAERS Safety Report 6934965-0 (Version None)
Quarter: 2010Q3

REPORT INFORMATION
  Report Type: 
  Country: None (occurrence: None)
  Receive Date: 20100821
  Receipt Date: 20100816
  Transmission Date: 20110219
  Serious: Yes (Life-Threatening, Hospitalization)
  Sender: FDA-Public Use
  Company Number: PHHY2010FI53870

PATIENT
  Sex: Female

DRUGS (1)
  1. LEPONEX [Suspect]

REACTIONS (2)
  - GASTROINTESTINAL TOXICITY [None]
  - OBSTRUCTION GASTRIC [None]
